FAERS Safety Report 9511187 (Version 2)
Quarter: 2014Q1

REPORT INFORMATION
  Report Type: Spontaneous
  Country: US (occurrence: None)
  Receive Date: 20130305
  Receipt Date: 20140306
  Transmission Date: 20141002
  Serious: Yes (Other)
  Sender: FDA-Public Use
  Company Number: 163-21880-12120553

PATIENT
  Age: 83 Year
  Sex: Male

DRUGS (13)
  1. REVLIMID [Suspect]
     Indication: MYELODYSPLASTIC SYNDROME
     Route: 048
     Dates: start: 200607
  2. ATENOLOL [Concomitant]
  3. SIMVASTATIN [Concomitant]
  4. LISINOPRIL [Concomitant]
  5. ALLEGRA [Concomitant]
  6. AMLODIPINE [Concomitant]
  7. FLONASE (FLUTICASONE PROPIONATE) [Concomitant]
  8. LIBRIUM (CHLORDIAZEPOXIDE HYDROCHLORIDE) [Concomitant]
  9. TYLENOL (PARACETAMOL) [Concomitant]
  10. PSYLLIUM [Concomitant]
  11. ASPIRIN (ACETYLSALICYLIC ACID) [Concomitant]
  12. VITAMIN C [Concomitant]
  13. CENTRUM SILVER [Concomitant]

REACTIONS (1)
  - Sleep apnoea syndrome [None]
